FAERS Safety Report 4722137-X (Version None)
Quarter: 2005Q3

REPORT INFORMATION
  Report Type: 
  Country: None (occurrence: None)
  Receive Date: 20050722
  Receipt Date: 20040802
  Transmission Date: 20060218
  Serious: No
  Sender: FDA-Public Use
  Company Number: US-GLAXOSMITHKLINE-A0520645A

PATIENT
  Age: 74 Year
  Sex: Female
  Weight: 90.9 kg

DRUGS (1)
  1. AVANDIA [Suspect]
     Indication: BLOOD GLUCOSE
     Dosage: 8MG PER DAY
     Route: 048

REACTIONS (1)
  - WEIGHT INCREASED [None]
